FAERS Safety Report 23738475 (Version 1)
Quarter: 2024Q2

REPORT INFORMATION
  Report Type: Spontaneous
  Country: HR (occurrence: HR)
  Receive Date: 20240412
  Receipt Date: 20240412
  Transmission Date: 20240716
  Serious: Yes (Other)
  Sender: FDA-Public Use
  Company Number: None

PATIENT
  Age: 21 Month
  Sex: Female
  Weight: 12 kg

DRUGS (1)
  1. VENTOLIN [Suspect]
     Active Substance: ALBUTEROL SULFATE
     Indication: Respiratory tract infection viral
     Dosage: DOSING 2 PUSHES, PRESSURISED AEROSOLS, METERED DOSE
     Route: 055
     Dates: start: 20240228, end: 20240228

REACTIONS (2)
  - Psychomotor hyperactivity [Recovered/Resolved]
  - Psychomotor hyperactivity [Recovered/Resolved]

NARRATIVE: CASE EVENT DATE: 20240228
